FAERS Safety Report 6564691-1 (Version None)
Quarter: 2010Q1

REPORT INFORMATION
  Report Type: 
  Country: None (occurrence: None)
  Receive Date: 20100201
  Receipt Date: 20100119
  Transmission Date: 20100710
  Serious: Yes (Other)
  Sender: FDA-Public Use
  Company Number: US-JNJFOC-20100108393

PATIENT
  Age: 32 Year
  Sex: Female

DRUGS (1)
  1. INFLIXIMAB [Suspect]
     Indication: CROHN'S DISEASE
     Dosage: THERAPY DURATION OF GREATER THAN 3 YEARS
     Route: 042

REACTIONS (1)
  - HISTOPLASMOSIS DISSEMINATED [None]
